FAERS Safety Report 17808271 (Version 1)
Quarter: 2020Q2

REPORT INFORMATION
  Report Type: Spontaneous
  Country: CA (occurrence: CA)
  Receive Date: 20200520
  Receipt Date: 20200520
  Transmission Date: 20200714
  Serious: No
  Sender: FDA-Public Use
  Company Number: CA-ROCHE-2599819

PATIENT
  Age: 42 Year
  Sex: Female

DRUGS (1)
  1. OCREVUS [Suspect]
     Active Substance: OCRELIZUMAB
     Indication: MULTIPLE SCLEROSIS
     Route: 042
     Dates: start: 20191023

REACTIONS (5)
  - Hypoaesthesia [Unknown]
  - Oral herpes [Recovered/Resolved]
  - Fatigue [Unknown]
  - Coordination abnormal [Unknown]
  - Cough [Unknown]

NARRATIVE: CASE EVENT DATE: 20200101
